FAERS Safety Report 25050456 (Version 1)
Quarter: 2025Q1

REPORT INFORMATION
  Report Type: Spontaneous
  Country: US (occurrence: US)
  Receive Date: 20250307
  Receipt Date: 20250307
  Transmission Date: 20250409
  Serious: No
  Sender: TAKEDA
  Company Number: US-TAKEDA-2025TUS023807

PATIENT
  Age: 61 Year
  Sex: Male

DRUGS (2)
  1. VELCADE [Suspect]
     Active Substance: BORTEZOMIB
     Indication: Product used for unknown indication
  2. DARZALEX FASPRO [Suspect]
     Active Substance: DARATUMUMAB\HYALURONIDASE-FIHJ
     Indication: Plasma cell myeloma

REACTIONS (2)
  - Asthenia [Not Recovered/Not Resolved]
  - Gait inability [Not Recovered/Not Resolved]
